FAERS Safety Report 17948031 (Version 1)
Quarter: 2020Q2

REPORT INFORMATION
  Report Type: Spontaneous
  Country: US (occurrence: US)
  Receive Date: 20200626
  Receipt Date: 20200626
  Transmission Date: 20200714
  Serious: Yes (Death, Hospitalization)
  Sender: FDA-Public Use
  Company Number: None

PATIENT
  Age: 69 Year
  Sex: Female
  Weight: 91 kg

DRUGS (3)
  1. LENALIDOMIDE (CC-5013) [Suspect]
     Active Substance: LENALIDOMIDE
     Dates: end: 20181203
  2. DEXAMETHASONE. [Suspect]
     Active Substance: DEXAMETHASONE
     Dates: end: 20181204
  3. VELCADE [Suspect]
     Active Substance: BORTEZOMIB
     Dates: end: 20181204

REACTIONS (9)
  - Cardiogenic shock [None]
  - Asthenia [None]
  - Fatigue [None]
  - Acute kidney injury [None]
  - Oedema peripheral [None]
  - Hypophagia [None]
  - Multiple organ dysfunction syndrome [None]
  - Arthralgia [None]
  - Disease progression [None]

NARRATIVE: CASE EVENT DATE: 20181204
